FAERS Safety Report 7335724-X (Version None)
Quarter: 2011Q1

REPORT INFORMATION
  Report Type: 
  Country: None (occurrence: None)
  Receive Date: 20110307
  Receipt Date: 20110228
  Transmission Date: 20110831
  Serious: Yes (Hospitalization)
  Sender: FDA-Public Use
  Company Number: B0701083A

PATIENT
  Sex: Female

DRUGS (1)
  1. AVANDAMET [Suspect]
     Indication: DIABETES MELLITUS
     Route: 048

REACTIONS (4)
  - AMNESIA [None]
  - HYPERTENSION [None]
  - CARDIAC FAILURE CONGESTIVE [None]
  - LIVER INJURY [None]
